FAERS Safety Report 10570280 (Version 1)
Quarter: 2014Q4

REPORT INFORMATION
  Report Type: Spontaneous
  Country: GB (occurrence: None)
  Receive Date: 20141105
  Receipt Date: 20141105
  Transmission Date: 20150529
  Serious: Yes (Life-Threatening, Hospitalization)
  Sender: FDA-Public Use
  Company Number: AMAG201400060

PATIENT
  Age: 78 Year
  Sex: Female

DRUGS (2)
  1. RIENSO (FERUMOXYTOL) INJECTION [Suspect]
     Active Substance: FERUMOXYTOL
     Indication: NUCLEAR MAGNETIC RESONANCE IMAGING
     Route: 042
     Dates: start: 20130924, end: 20130924
  2. BUSCOPAN (HYOSCINE BUTYLBROMIDE) (HYOSCINE BUTYLBROMIDE) [Concomitant]
     Active Substance: BUTYLSCOPOLAMINE

REACTIONS (10)
  - Fall [None]
  - Atrial fibrillation [None]
  - Left ventricular dysfunction [None]
  - Sinus arrest [None]
  - Ventricular septal defect [None]
  - Sinus node dysfunction [None]
  - Lower respiratory tract infection [None]
  - Cardiac failure [None]
  - Chest pain [None]
  - Emphysema [None]

NARRATIVE: CASE EVENT DATE: 20131230
